FAERS Safety Report 15453439 (Version 1)
Quarter: 2018Q4

REPORT INFORMATION
  Report Type: Report from Study
  Country: US (occurrence: US)
  Receive Date: 20181001
  Receipt Date: 20181001
  Transmission Date: 20190204
  Serious: No
  Sender: FDA-Public Use
  Company Number: PHEH2018US040024

PATIENT
  Sex: Male

DRUGS (1)
  1. ENTRESTO [Suspect]
     Active Substance: SACUBITRIL\VALSARTAN
     Indication: PRODUCT USED FOR UNKNOWN INDICATION
     Dosage: UNK
     Route: 065
     Dates: start: 201807

REACTIONS (6)
  - Sleep disorder [Unknown]
  - Fatigue [Unknown]
  - Cardiac disorder [Unknown]
  - Intervertebral disc protrusion [Unknown]
  - Back disorder [Unknown]
  - Renal disorder [Unknown]
